FAERS Safety Report 4339196-9 (Version None)
Quarter: 2004Q2

REPORT INFORMATION
  Report Type: 
  Country: None (occurrence: None)
  Receive Date: 20040412
  Receipt Date: 20040329
  Transmission Date: 20050107
  Serious: Yes (Disabling, Other)
  Sender: FDA-Public Use
  Company Number: 2004021730

PATIENT
  Age: 45 Year
  Sex: Male
  Weight: 86.1834 kg

DRUGS (10)
  1. LIPITOR [Suspect]
     Indication: BLOOD CHOLESTEROL INCREASED
     Dosage: 40 MG (DAILY), ORAL
     Route: 048
     Dates: start: 20020501
  2. PRAVASTATIN SODIUM [Suspect]
     Indication: BLOOD CHOLESTEROL INCREASED
  3. SIMVASTATIN [Suspect]
     Indication: BLOOD CHOLESTEROL INCREASED
  4. METOPROLOL (METOPROLOL) [Concomitant]
  5. CLOPIDOGREL BISULFATE [Concomitant]
  6. ACETYLSALICYLI ACID (ACETYLSALICYLIC ACID) [Concomitant]
  7. ENALAPRIL MALEATE [Concomitant]
  8. NICOTINIC ACID [Concomitant]
  9. EZETIMIBE (EZETIMIBE) [Concomitant]
  10. DIPHENHYDRAMINE HCL [Concomitant]

REACTIONS (2)
  - CORONARY ARTERY OCCLUSION [None]
  - MYOCARDIAL INFARCTION [None]
